FAERS Safety Report 25251502 (Version 1)
Quarter: 2025Q2

REPORT INFORMATION
  Report Type: Spontaneous
  Country: CA (occurrence: None)
  Receive Date: 20250429
  Receipt Date: 20250429
  Transmission Date: 20250717
  Serious: Yes (Other)
  Sender: INFORLIFE
  Company Number: CA-MLMSERVICE-20250414-PI477726-00029-3

PATIENT
  Age: 1 Year
  Sex: Female

DRUGS (19)
  1. ACETAMINOPHEN [Suspect]
     Active Substance: ACETAMINOPHEN
     Indication: Illness
  2. MYCOPHENOLATE MOFETIL [Concomitant]
     Active Substance: MYCOPHENOLATE MOFETIL
     Indication: Immunosuppressant drug therapy
     Dates: start: 2021
  3. TACROLIMUS [Concomitant]
     Active Substance: TACROLIMUS
     Indication: Immunosuppressant drug therapy
     Dates: start: 2021
  4. SIROLIMUS [Concomitant]
     Active Substance: SIROLIMUS
     Indication: Immunosuppressant drug therapy
     Dates: start: 2021
  5. PREDNISONE [Concomitant]
     Active Substance: PREDNISONE
     Indication: Immunosuppressant drug therapy
     Dates: start: 2021
  6. PREDNISONE [Concomitant]
     Active Substance: PREDNISONE
     Indication: Immunosuppressant drug therapy
     Dates: start: 2021
  7. ENALAPRIL [Concomitant]
     Active Substance: ENALAPRIL
  8. METHYLPREDNISOLONE [Concomitant]
     Active Substance: METHYLPREDNISOLONE
     Indication: Methaemoglobinaemia
  9. HYDROXYZINE [Concomitant]
     Active Substance: HYDROXYZINE HYDROCHLORIDE
     Indication: Linear IgA disease
     Route: 048
  10. DOXEPIN [Concomitant]
     Active Substance: DOXEPIN
     Indication: Linear IgA disease
     Route: 048
  11. METHYLENE BLUE [Concomitant]
     Active Substance: METHYLENE BLUE
     Indication: Methaemoglobinaemia
  12. PROTOPIC [Concomitant]
     Active Substance: TACROLIMUS
     Indication: Linear IgA disease
  13. BETADERM [Concomitant]
     Active Substance: BETAMETHASONE VALERATE
     Indication: Pruritus
  14. CLOBETASOL [Concomitant]
     Active Substance: CLOBETASOL
     Indication: Blister
  15. MUPIROCIN [Concomitant]
     Active Substance: MUPIROCIN
     Indication: Ulcer
  16. DAPSONE [Concomitant]
     Active Substance: DAPSONE
     Indication: Linear IgA disease
  17. OMALIZUMAB [Concomitant]
     Active Substance: OMALIZUMAB
     Indication: Linear IgA disease
  18. AMOXICILLIN [Concomitant]
     Active Substance: AMOXICILLIN
     Indication: Asplenia
  19. CEFAZOLIN [Concomitant]
     Active Substance: CEFAZOLIN
     Indication: Evidence based treatment

REACTIONS (2)
  - Autoimmune disorder [Recovering/Resolving]
  - Linear IgA disease [Recovering/Resolving]
